FAERS Safety Report 9219952 (Version 3)
Quarter: 2013Q3

REPORT INFORMATION
  Report Type: Spontaneous
  Country: DE (occurrence: JP)
  Receive Date: 20130409
  Receipt Date: 20130725
  Transmission Date: 20140515
  Serious: Yes (Hospitalization)
  Sender: FDA-Public Use
  Company Number: JP-FRI-1000043458

PATIENT
  Age: 78 Year
  Sex: Male

DRUGS (15)
  1. MEMANTINE [Suspect]
     Indication: DEMENTIA WITH LEWY BODIES
     Dosage: 5 MG
     Route: 048
  2. MEMANTINE [Suspect]
     Dosage: 10 MG
     Route: 048
  3. MEMANTINE [Suspect]
     Dosage: 15 MG
     Route: 048
  4. MEMANTINE [Suspect]
     Dosage: 20 MG
     Route: 048
     Dates: end: 20130301
  5. MEMANTINE [Suspect]
     Indication: DEMENTIA WITH LEWY BODIES
     Dosage: 20 MG
     Route: 048
     Dates: start: 20130303, end: 20130306
  6. RIVASTACH [Suspect]
     Indication: DEMENTIA WITH LEWY BODIES
     Dosage: 18 MG
     Dates: end: 20130309
  7. MICARDIS [Concomitant]
     Indication: HYPERTENSION
     Dosage: 40 MG
     Route: 048
  8. VASOMET [Concomitant]
     Indication: HYPERTENSION
     Dosage: 2 MG
     Route: 048
  9. ZYLORIC [Concomitant]
     Indication: HYPERURICAEMIA
     Dosage: 100 MG
     Route: 048
  10. BAYASPIRIN [Concomitant]
     Dosage: 100 MG
     Route: 048
  11. LASIX [Concomitant]
     Indication: HYPERTENSION
     Dosage: 40 MG
     Route: 048
  12. AMLODIPINE OD [Concomitant]
     Indication: HYPERTENSION
     Dosage: 10 MG
     Route: 048
  13. APONOL [Concomitant]
     Dosage: 60 MG
     Route: 048
     Dates: end: 20130306
  14. JANUVIA [Concomitant]
     Indication: DIABETES MELLITUS
     Dosage: 50 MG
     Route: 048
     Dates: start: 20130228, end: 20130303
  15. EUGLUCON [Concomitant]
     Dates: end: 20130301

REACTIONS (4)
  - Feeling jittery [Recovered/Resolved]
  - Muscle rigidity [Recovered/Resolved]
  - Altered state of consciousness [Recovered/Resolved]
  - Off label use [Recovered/Resolved]
